FAERS Safety Report 10431218 (Version 1)
Quarter: 2014Q3

REPORT INFORMATION
  Report Type: Spontaneous
  Country: US (occurrence: None)
  Receive Date: 20140815
  Receipt Date: 20140815
  Transmission Date: 20150326
  Serious: No
  Sender: FDA-Public Use
  Company Number: A-NJ2014-099917

PATIENT
  Age: 54 Year
  Sex: Female

DRUGS (1)
  1. OPSUMIT [Suspect]
     Active Substance: MACITENTAN
     Indication: PULMONARY ARTERIAL HYPERTENSION
     Route: 048
     Dates: start: 20140513, end: 20140530

REACTIONS (3)
  - Alopecia [None]
  - Diarrhoea [None]
  - Rectal haemorrhage [None]

NARRATIVE: CASE EVENT DATE: 20140529
